FAERS Safety Report 9665441 (Version 6)
Quarter: 2014Q1

REPORT INFORMATION
  Report Type: Report from Study
  Country: KR (occurrence: KR)
  Receive Date: 20131104
  Receipt Date: 20140205
  Transmission Date: 20141002
  Serious: Yes (Hospitalization)
  Sender: FDA-Public Use
  Company Number: KR-ROCHE-1297668

PATIENT
  Age: 58 Year
  Sex: Male
  Weight: 58 kg

DRUGS (49)
  1. RITUXIMAB [Suspect]
     Indication: DIFFUSE LARGE B-CELL LYMPHOMA
     Route: 042
     Dates: start: 20131018
  2. CYCLOPHOSPHAMID [Suspect]
     Indication: DIFFUSE LARGE B-CELL LYMPHOMA
     Route: 065
  3. DOXORUBICIN [Suspect]
     Indication: DIFFUSE LARGE B-CELL LYMPHOMA
     Route: 065
  4. VINCRISTINE [Suspect]
     Indication: DIFFUSE LARGE B-CELL LYMPHOMA
     Route: 065
  5. PREDNISOLONE [Suspect]
     Indication: DIFFUSE LARGE B-CELL LYMPHOMA
     Route: 065
  6. TELBIVUDINE [Concomitant]
     Indication: PROPHYLAXIS
     Dosage: EVERYDAY
     Route: 048
     Dates: start: 20131018
  7. DUPHALAC [Concomitant]
     Indication: CONSTIPATION
     Route: 048
     Dates: start: 20131010, end: 20131128
  8. MAGNESIUM OXIDE [Concomitant]
     Indication: CONSTIPATION
     Route: 048
     Dates: start: 20131010, end: 20131128
  9. OXYCODONE [Concomitant]
     Indication: MUSCULOSKELETAL PAIN
     Route: 048
     Dates: start: 20131010, end: 20131128
  10. OXYCODONE [Concomitant]
     Indication: NECK PAIN
     Route: 048
     Dates: start: 20131010, end: 20131011
  11. OXYCODONE [Concomitant]
     Route: 048
     Dates: start: 20131012, end: 20131128
  12. MORPHINE SULFATE [Concomitant]
     Indication: MUSCULOSKELETAL PAIN
     Dosage: EVERYDAY
     Route: 042
     Dates: start: 20131010, end: 20131012
  13. MORPHINE SULFATE [Concomitant]
     Indication: NECK PAIN
     Dosage: ONCE
     Route: 042
     Dates: start: 20131014, end: 20131014
  14. MORPHINE SULFATE [Concomitant]
     Dosage: ONCE
     Route: 042
     Dates: start: 20131017, end: 20131017
  15. PETHIDINE [Concomitant]
     Indication: PROPHYLAXIS
     Dosage: ONCE
     Route: 042
     Dates: start: 20131011, end: 20131011
  16. KYTRIL [Concomitant]
     Indication: PROPHYLAXIS
     Route: 042
     Dates: start: 20131018, end: 20131018
  17. KYTRIL [Concomitant]
     Route: 048
     Dates: start: 20131108, end: 20131110
  18. KYTRIL [Concomitant]
     Route: 048
     Dates: start: 20131129, end: 20131201
  19. TACENOL ER [Concomitant]
     Indication: PROPHYLAXIS
     Dosage: ONCE
     Route: 048
     Dates: start: 20131018, end: 20131018
  20. TACENOL ER [Concomitant]
     Dosage: ONCE
     Route: 048
     Dates: start: 20131108, end: 20131108
  21. TACENOL ER [Concomitant]
     Dosage: ONCE
     Route: 048
     Dates: start: 20131129, end: 20131129
  22. ACETAMINOPHEN [Concomitant]
     Indication: PROPHYLAXIS
     Dosage: ONCE
     Route: 048
     Dates: start: 20131018, end: 20131018
  23. ACETAMINOPHEN [Concomitant]
     Dosage: ONCE
     Route: 048
     Dates: start: 20131108, end: 20131108
  24. ACETAMINOPHEN [Concomitant]
     Dosage: ONCE
     Route: 048
     Dates: start: 20131129, end: 20131129
  25. CHLORPHENIRAMINE MALEATE [Concomitant]
     Indication: PROPHYLAXIS
     Dosage: ONCE
     Route: 042
     Dates: start: 20131018, end: 20131018
  26. CHLORPHENIRAMINE MALEATE [Concomitant]
     Dosage: ONCE
     Route: 042
     Dates: start: 20131108, end: 20131108
  27. CHLORPHENIRAMINE MALEATE [Concomitant]
     Dosage: ONCE
     Route: 042
     Dates: start: 20131129, end: 20131129
  28. ULCERMIN (SUCRALFATE) [Concomitant]
     Indication: PROPHYLAXIS
     Route: 048
     Dates: start: 20131020, end: 20131022
  29. ULCERMIN (SUCRALFATE) [Concomitant]
     Route: 048
     Dates: start: 20131108, end: 20131113
  30. ULCERMIN (SUCRALFATE) [Concomitant]
     Route: 048
     Dates: start: 20131129, end: 20131204
  31. METOCLOPRAMIDE [Concomitant]
     Indication: PROPHYLAXIS
     Route: 048
     Dates: start: 20131020, end: 20131022
  32. METOCLOPRAMIDE [Concomitant]
     Route: 048
     Dates: start: 20131108, end: 20131113
  33. METOCLOPRAMIDE [Concomitant]
     Route: 048
     Dates: start: 20131129, end: 20131204
  34. LEUCOSTIM [Concomitant]
     Indication: PROPHYLAXIS
     Dosage: EVERYDAY
     Route: 058
     Dates: start: 20131113, end: 20131117
  35. LEUCOSTIM [Concomitant]
     Dosage: EVERYDAY
     Route: 058
     Dates: start: 20131204, end: 20131208
  36. MUPIROCIN [Concomitant]
     Indication: DERMATITIS
     Route: 050
     Dates: start: 20131028, end: 20131028
  37. GASTER (FAMOTIDINE) [Concomitant]
     Indication: PROPHYLAXIS
     Route: 048
     Dates: start: 20131019, end: 20131024
  38. DUROGESIC D TRANS [Concomitant]
     Indication: MUSCULOSKELETAL PAIN
     Dosage: EVERY THREE DAYS
     Route: 065
     Dates: start: 20131028
  39. DUROGESIC D TRANS [Concomitant]
     Indication: NECK PAIN
  40. DUROGESIC D TRANS [Concomitant]
     Indication: CHEST PAIN
  41. DUROGESIC D TRANS [Concomitant]
     Indication: OROPHARYNGEAL PAIN
  42. HEXAMEDINE [Concomitant]
     Indication: OROPHARYNGEAL PAIN
     Route: 065
     Dates: start: 20131028
  43. HEXAMEDINE [Concomitant]
     Indication: PROPHYLAXIS
  44. NYSTATIN [Concomitant]
     Indication: OROPHARYNGEAL PAIN
     Dosage: 1:5000 GARGLE SOLUTION
     Route: 065
     Dates: start: 20131028
  45. NYSTATIN [Concomitant]
     Indication: PROPHYLAXIS
  46. PHOSTEN [Concomitant]
     Indication: HYPOPHOSPHATAEMIA
     Dosage: EVERYDAY
     Route: 042
     Dates: start: 20131028, end: 20131030
  47. LASIX [Concomitant]
     Dosage: ONCE
     Route: 042
     Dates: start: 20131030, end: 20131030
  48. CEFPODOXIME [Concomitant]
     Indication: PROPHYLAXIS
     Route: 042
     Dates: start: 20131101, end: 20131107
  49. SULFAMETHOXAZOLE/TRIMETHOPRIM [Concomitant]
     Indication: PNEUMOCYSTIS JIROVECII PNEUMONIA
     Route: 048
     Dates: start: 20131226, end: 20140109

REACTIONS (2)
  - Oesophagitis [Recovered/Resolved]
  - Febrile neutropenia [Recovered/Resolved]
